FAERS Safety Report 22255938 (Version 2)
Quarter: 2023Q2

REPORT INFORMATION
  Report Type: Spontaneous
  Country: CO (occurrence: CO)
  Receive Date: 20230426
  Receipt Date: 20230517
  Transmission Date: 20230721
  Serious: Yes (Other)
  Sender: FDA-Public Use
  Company Number: CO-JNJFOC-20230323237

PATIENT
  Age: 64 Year
  Sex: Female
  Weight: 60 kg

DRUGS (11)
  1. INVEGA TRINZA [Suspect]
     Active Substance: PALIPERIDONE PALMITATE
     Indication: Schizophrenia
     Route: 030
     Dates: start: 20230306
  2. INVEGA TRINZA [Suspect]
     Active Substance: PALIPERIDONE PALMITATE
  3. INVEGA TRINZA [Suspect]
     Active Substance: PALIPERIDONE PALMITATE
  4. ATORVASTATIN [Concomitant]
     Active Substance: ATORVASTATIN
  5. VALSARTAN [Concomitant]
     Active Substance: VALSARTAN
  6. ASPIRIN [Concomitant]
     Active Substance: ASPIRIN
  7. DAPAGLIFLOZIN [Concomitant]
     Active Substance: DAPAGLIFLOZIN
  8. INSULIN GLARGINE [Concomitant]
     Active Substance: INSULIN GLARGINE
  9. INSULIN GLULISINE [Concomitant]
     Active Substance: INSULIN GLULISINE
  10. TRAMADOL [Concomitant]
     Active Substance: TRAMADOL
  11. ACETAMINOPHEN [Concomitant]
     Active Substance: ACETAMINOPHEN

REACTIONS (2)
  - Renal failure [Recovering/Resolving]
  - Product prescribing error [Unknown]

NARRATIVE: CASE EVENT DATE: 20230301
